FAERS Safety Report 8509428-1 (Version None)
Quarter: 2012Q3

REPORT INFORMATION
  Report Type: 
  Country: None (occurrence: None)
  Receive Date: 20120713
  Receipt Date: 20120711
  Transmission Date: 20120928
  Serious: Yes (Hospitalization, Other)
  Sender: FDA-Public Use
  Company Number: CA-ROCHE-1086793

PATIENT
  Age: 16 Year
  Sex: Female
  Weight: 60 kg

DRUGS (5)
  1. BENYLIN (UNK INGREDIENTS) [Concomitant]
     Route: 065
  2. LACTASE [Concomitant]
     Route: 065
  3. LANTUS [Concomitant]
     Route: 058
  4. HUMALOG [Concomitant]
     Route: 030
  5. TAMIFLU [Suspect]
     Indication: PRODUCT USED FOR UNKNOWN INDICATION
     Route: 048

REACTIONS (5)
  - AMYLASE INCREASED [None]
  - PANCREATITIS [None]
  - LIPASE INCREASED [None]
  - ABDOMINAL PAIN [None]
  - HYPERTRIGLYCERIDAEMIA [None]
